FAERS Safety Report 12718150 (Version 1)
Quarter: 2016Q3

REPORT INFORMATION
  Report Type: Spontaneous
  Country: DE (occurrence: DE)
  Receive Date: 20160906
  Receipt Date: 20160906
  Transmission Date: 20161109
  Serious: Yes (Disabling)
  Sender: FDA-Public Use
  Company Number: GXKR2016DE004104

PATIENT

DRUGS (1)
  1. DOXYCYCLINE. [Suspect]
     Active Substance: DOXYCYCLINE
     Indication: BORRELIA INFECTION
     Dosage: 200 MG, UNK
     Route: 048
     Dates: start: 20160517, end: 20160606

REACTIONS (2)
  - Tendon pain [Not Recovered/Not Resolved]
  - Tendon discomfort [Not Recovered/Not Resolved]

NARRATIVE: CASE EVENT DATE: 20160525
